FAERS Safety Report 6110931-2 (Version None)
Quarter: 2009Q1

REPORT INFORMATION
  Report Type: 
  Country: None (occurrence: None)
  Receive Date: 20090311
  Receipt Date: 20090116
  Transmission Date: 20090719
  Serious: No
  Sender: FDA-Public Use
  Company Number: US-KINGPHARMUSA00001-K200900045

PATIENT
  Sex: Female

DRUGS (3)
  1. ALTACE [Suspect]
     Dosage: UNK
     Route: 048
     Dates: end: 20070801
  2. THIAZIDE DERIVATIVES [Concomitant]
  3. CYCLOSPORINE [Concomitant]

REACTIONS (1)
  - HYPERKALAEMIA [None]
